FAERS Safety Report 18544243 (Version 1)
Quarter: 2020Q4

REPORT INFORMATION
  Report Type: Spontaneous
  Country: US (occurrence: US)
  Receive Date: 20201125
  Receipt Date: 20201125
  Transmission Date: 20210114
  Serious: Yes (Hospitalization, Other)
  Sender: FDA-Public Use
  Company Number: US-STRIDES ARCOLAB LIMITED-2020SP014280

PATIENT
  Age: 66 Year
  Sex: Male

DRUGS (10)
  1. ANTI-THYMOCYTE GAMMA GLOBULIN [Suspect]
     Active Substance: THYMOCYTE IMMUNE GLOBULIN NOS
     Indication: RENAL TRANSPLANT
     Dosage: 4 DOSAGE FORM
     Route: 065
     Dates: start: 201808
  2. SULFAMETHOXAZOLE, TRIMETHOPRIM [Concomitant]
     Active Substance: SULFAMETHOXAZOLE\TRIMETHOPRIM
     Indication: INFECTION PROPHYLAXIS
     Dosage: UNK
     Route: 065
     Dates: start: 201808
  3. METHYLPREDNISOLONE. [Suspect]
     Active Substance: METHYLPREDNISOLONE
     Indication: RENAL TRANSPLANT
     Dosage: PULSE-DOSE
     Route: 065
     Dates: start: 201809
  4. METHYLPREDNISOLONE. [Suspect]
     Active Substance: METHYLPREDNISOLONE
     Indication: TRANSPLANT REJECTION
  5. PREDNISOLONE. [Suspect]
     Active Substance: PREDNISOLONE
     Indication: RENAL TRANSPLANT
  6. PREDNISOLONE. [Suspect]
     Active Substance: PREDNISOLONE
     Indication: TRANSPLANT REJECTION
     Dosage: TAPER
     Route: 048
     Dates: start: 201809
  7. VALGANCICLOVIR. [Concomitant]
     Active Substance: VALGANCICLOVIR
     Indication: INFECTION PROPHYLAXIS
     Dosage: UNK
     Route: 065
     Dates: start: 201808
  8. NYSTATIN. [Concomitant]
     Active Substance: NYSTATIN
     Indication: INFECTION PROPHYLAXIS
     Dosage: SWISH AND SWALLOW
     Route: 048
     Dates: start: 201808
  9. MYCOPHENOLATE MOFETIL. [Suspect]
     Active Substance: MYCOPHENOLATE MOFETIL
     Indication: RENAL TRANSPLANT
     Dosage: UNK
     Route: 065
     Dates: start: 201808
  10. TACROLIMUS. [Suspect]
     Active Substance: TACROLIMUS
     Indication: RENAL TRANSPLANT
     Dosage: UNK
     Route: 065
     Dates: start: 201808

REACTIONS (16)
  - Nodular rash [Recovered/Resolved]
  - Trichophytosis [Recovered/Resolved]
  - Nodule [Recovered/Resolved]
  - Chronic papillomatous dermatitis [Recovered/Resolved]
  - Postoperative wound infection [Recovered/Resolved]
  - Oropharyngeal plaque [Recovered/Resolved]
  - Abscess [Recovered/Resolved]
  - Papule [Recovered/Resolved]
  - Neutrophilic dermatosis [Recovered/Resolved]
  - Disseminated trichosporonosis [Recovered/Resolved]
  - Inflammation [Recovered/Resolved]
  - Pulmonary mass [Recovered/Resolved]
  - Rash erythematous [Recovered/Resolved]
  - Staphylococcal infection [Recovered/Resolved]
  - Dermatophytosis [Recovered/Resolved]
  - Erythema [Recovered/Resolved]

NARRATIVE: CASE EVENT DATE: 201809
